FAERS Safety Report 9924694 (Version 1)
Quarter: 2014Q1

REPORT INFORMATION
  Report Type: Spontaneous
  Country: US (occurrence: US)
  Receive Date: 20140226
  Receipt Date: 20140226
  Transmission Date: 20141002
  Serious: Yes (Other)
  Sender: FDA-Public Use
  Company Number: US-ASTRAZENECA-2014SE11986

PATIENT
  Age: 89 Year
  Sex: Female
  Weight: 54.4 kg

DRUGS (8)
  1. FASLODEX [Suspect]
     Indication: BREAST CANCER FEMALE
     Route: 030
     Dates: start: 20140124
  2. TAMOXIFEN [Suspect]
     Route: 048
  3. RADIATION [Suspect]
     Route: 065
  4. LIPITOR [Concomitant]
     Indication: BLOOD CHOLESTEROL ABNORMAL
     Route: 048
  5. VITAMINS [Concomitant]
  6. PAIN KILLER [Concomitant]
     Indication: PAIN
  7. BETA BLOCKER [Concomitant]
  8. DIFFERENT DROPS FOR GLAUCOMA [Concomitant]

REACTIONS (7)
  - Breast cancer recurrent [Unknown]
  - Metastases to lung [Unknown]
  - Metastases to lymph nodes [Unknown]
  - Radiation osteitis [Unknown]
  - Bone pain [Not Recovered/Not Resolved]
  - Wound [Not Recovered/Not Resolved]
  - Impaired healing [Not Recovered/Not Resolved]
